FAERS Safety Report 21260028 (Version 1)
Quarter: 2022Q3

REPORT INFORMATION
  Report Type: Spontaneous
  Country: US (occurrence: None)
  Receive Date: 20220825
  Receipt Date: 20220825
  Transmission Date: 20221027
  Serious: Yes (Hospitalization)
  Sender: FDA-Public Use
  Company Number: None

PATIENT
  Age: 54 Year
  Sex: Female
  Weight: 94.95 kg

DRUGS (12)
  1. DEFINITY [Suspect]
     Active Substance: PERFLUTREN
     Indication: Cardiac stress test
     Dosage: OTHER QUANTITY : 2 INJECTION(S);?OTHER FREQUENCY : 1X;?
     Route: 042
  2. HIZENTRA [Concomitant]
     Active Substance: HUMAN IMMUNOGLOBULIN G
  3. PREVACID [Concomitant]
     Active Substance: LANSOPRAZOLE
  4. OXYBUTYNIN [Concomitant]
     Active Substance: OXYBUTYNIN
  5. TRAZODONE [Concomitant]
     Active Substance: TRAZODONE HYDROCHLORIDE
  6. MELOXICAM [Concomitant]
     Active Substance: MELOXICAM
  7. LAMOTRIGINE [Concomitant]
     Active Substance: LAMOTRIGINE
  8. LASIX [Concomitant]
     Active Substance: FUROSEMIDE
  9. BENTYL [Concomitant]
     Active Substance: DICYCLOMINE HYDROCHLORIDE
  10. VITAMIN D [Concomitant]
     Active Substance: VITAMIN D NOS
  11. VITAMINS [Concomitant]
     Active Substance: VITAMINS
  12. PROBIOTICS NOS [Concomitant]
     Active Substance: PROBIOTICS NOS

REACTIONS (7)
  - Back pain [None]
  - Dizziness [None]
  - Chest pain [None]
  - Disorientation [None]
  - Nausea [None]
  - Headache [None]
  - Musculoskeletal stiffness [None]

NARRATIVE: CASE EVENT DATE: 20220824
